FAERS Safety Report 5721950-X (Version None)
Quarter: 2008Q2

REPORT INFORMATION
  Report Type: 
  Country: None (occurrence: None)
  Receive Date: 20080429
  Receipt Date: 20080423
  Transmission Date: 20081010
  Serious: Yes (Other)
  Sender: FDA-Public Use
  Company Number: FR-BRISTOL-MYERS SQUIBB COMPANY-14162671

PATIENT
  Age: 44 Year
  Sex: Male
  Weight: 72 kg

DRUGS (7)
  1. REYATAZ [Suspect]
     Dates: start: 20060613
  2. EPIVIR [Suspect]
     Dates: start: 19961008
  3. VIRACEPT [Suspect]
     Dates: start: 20000114, end: 20010420
  4. VIREAD [Suspect]
     Dates: start: 20030211
  5. TRIATEC [Concomitant]
     Dates: start: 20040901
  6. AMLOR [Concomitant]
     Dates: start: 20060101
  7. ASPIRIN [Concomitant]
     Dates: start: 20070727

REACTIONS (2)
  - ANAL NEOPLASM [None]
  - PAPILLOMA VIRAL INFECTION [None]
